FAERS Safety Report 10568913 (Version 1)
Quarter: 2014Q4

REPORT INFORMATION
  Report Type: Spontaneous
  Country: US (occurrence: US)
  Receive Date: 20141106
  Receipt Date: 20141106
  Transmission Date: 20150529
  Serious: Yes (Other)
  Sender: FDA-Public Use
  Company Number: US-BAYER-2014-163378

PATIENT
  Age: 60 Year
  Sex: Female

DRUGS (4)
  1. LETAIRIS [Suspect]
     Active Substance: AMBRISENTAN
     Indication: PULMONARY ARTERIAL HYPERTENSION
     Dosage: 10 MG, QD
     Dates: start: 20110429
  2. ADEMPAS [Suspect]
     Active Substance: RIOCIGUAT
  3. SIMVASTATIN. [Concomitant]
     Active Substance: SIMVASTATIN
  4. VERAPAMIL [Concomitant]
     Active Substance: VERAPAMIL HYDROCHLORIDE

REACTIONS (3)
  - Syncope [None]
  - Carbon dioxide increased [None]
  - Respiratory failure [None]

NARRATIVE: CASE EVENT DATE: 20141006
